FAERS Safety Report 15013981 (Version 4)
Quarter: 2018Q3

REPORT INFORMATION
  Report Type: Spontaneous
  Country: US (occurrence: US)
  Receive Date: 20180614
  Receipt Date: 20180801
  Transmission Date: 20181010
  Serious: No
  Sender: FDA-Public Use
  Company Number: PHEH2018US023706

PATIENT
  Age: 40 Year
  Sex: Male
  Weight: 102.9 kg

DRUGS (3)
  1. COSENTYX [Suspect]
     Active Substance: SECUKINUMAB
     Indication: PSORIATIC ARTHROPATHY
     Dosage: 300 MG, QW
     Route: 058
     Dates: start: 20180520, end: 20180604
  2. COSENTYX [Suspect]
     Active Substance: SECUKINUMAB
     Indication: PSORIASIS
  3. LEXAPRO [Suspect]
     Active Substance: ESCITALOPRAM OXALATE
     Indication: DEPRESSION
     Dosage: 20 MG, QD
     Route: 048

REACTIONS (10)
  - Pruritus [Unknown]
  - Rash erythematous [Unknown]
  - Skin exfoliation [Unknown]
  - Rash [Not Recovered/Not Resolved]
  - Erythema [Unknown]
  - Skin irritation [Not Recovered/Not Resolved]
  - Pain of skin [Unknown]
  - Urticaria [Unknown]
  - Hypersensitivity [Recovering/Resolving]
  - Skin oedema [Unknown]

NARRATIVE: CASE EVENT DATE: 20180206
